FAERS Safety Report 4827550-8 (Version None)
Quarter: 2005Q4

REPORT INFORMATION
  Report Type: 
  Country: None (occurrence: None)
  Receive Date: 20051114
  Receipt Date: 20050425
  Transmission Date: 20060501
  Serious: Yes (Death, Hospitalization)
  Sender: FDA-Public Use
  Company Number: DE-BRISTOL-MYERS SQUIBB COMPANY-12951844

PATIENT
  Age: 59 Year
  Sex: Male
  Weight: 96 kg

DRUGS (10)
  1. HOLOXAN [Suspect]
     Indication: SARCOMA
     Route: 042
     Dates: start: 20050420, end: 20050423
  2. DOXORUBICIN [Suspect]
     Indication: SARCOMA
     Route: 042
     Dates: start: 20050420, end: 20050420
  3. UROMITEXAN [Concomitant]
     Dates: start: 20050420, end: 20050423
  4. ALLOPURINOL [Concomitant]
  5. LASIX [Concomitant]
  6. PROPRANOLOL HYDROCHLORIDE [Concomitant]
  7. MOVICOL [Concomitant]
  8. NAVOBAN [Concomitant]
     Dates: start: 20050420, end: 20050423
  9. OSYROL LASIX [Concomitant]
  10. MONO MACK [Concomitant]

REACTIONS (3)
  - CIRCULATORY COLLAPSE [None]
  - ENCEPHALOPATHY [None]
  - MYOCARDIAL INFARCTION [None]
